FAERS Safety Report 4942072-1 (Version None)
Quarter: 2006Q1

REPORT INFORMATION
  Report Type: 
  Country: None (occurrence: None)
  Receive Date: 20060313
  Receipt Date: 20050520
  Transmission Date: 20060701
  Serious: No
  Sender: FDA-Public Use
  Company Number: US-GLAXOSMITHKLINE-A0559525A

PATIENT

DRUGS (1)
  1. NICORETTE [Suspect]
     Dates: start: 20050508, end: 20050517

REACTIONS (3)
  - EATING DISORDER [None]
  - GLOSSITIS [None]
  - SWOLLEN TONGUE [None]
